FAERS Safety Report 8862287 (Version 1)
Quarter: 2012Q4

REPORT INFORMATION
  Report Type: Report from Study
  Country: CA (occurrence: CA)
  Receive Date: 20121026
  Receipt Date: 20121026
  Transmission Date: 20130627
  Serious: Yes (Other)
  Sender: FDA-Public Use
  Company Number: CA-JNJFOC-20121007630

PATIENT
  Sex: Female
  Weight: 84.5 kg

DRUGS (4)
  1. REMICADE [Suspect]
     Indication: COLITIS ULCERATIVE
     Route: 042
     Dates: start: 20120702, end: 20121009
  2. DILAUDID [Suspect]
     Indication: ARTHRALGIA
     Route: 065
  3. VITAMIN D W/ CALCIUM [Concomitant]
     Route: 048
  4. PREDNISONE [Concomitant]
     Route: 048

REACTIONS (5)
  - Arthralgia [Recovering/Resolving]
  - Hypoaesthesia [Unknown]
  - Infusion related reaction [Recovered/Resolved]
  - Urticaria [Recovered/Resolved]
  - Pruritus [Unknown]
